FAERS Safety Report 16565670 (Version 3)
Quarter: 2019Q3

REPORT INFORMATION
  Report Type: Spontaneous
  Country: US (occurrence: US)
  Receive Date: 20190712
  Receipt Date: 20190916
  Transmission Date: 20191004
  Serious: No
  Sender: FDA-Public Use
  Company Number: US-PFIZER INC-2019293518

PATIENT
  Age: 75 Year
  Sex: Male
  Weight: 125 kg

DRUGS (2)
  1. LYRICA [Suspect]
     Active Substance: PREGABALIN
     Indication: NEUROPATHY PERIPHERAL
     Dosage: 25 MG, 2X/DAY
     Route: 048
     Dates: start: 201812
  2. LYRICA [Suspect]
     Active Substance: PREGABALIN
     Dosage: 25 MG, 2X/DAY
     Route: 048
     Dates: start: 201812

REACTIONS (2)
  - Oropharyngeal pain [Recovering/Resolving]
  - Musculoskeletal disorder [Unknown]

NARRATIVE: CASE EVENT DATE: 20190704
